FAERS Safety Report 8311615-2 (Version None)
Quarter: 2012Q2

REPORT INFORMATION
  Report Type: 
  Country: None (occurrence: None)
  Receive Date: 20120425
  Receipt Date: 20120417
  Transmission Date: 20120825
  Serious: Yes (Hospitalization)
  Sender: FDA-Public Use
  Company Number: US-ASTRAZENECA-2012SE17091

PATIENT
  Age: 39 Year
  Sex: Female
  Weight: 136.1 kg

DRUGS (16)
  1. SEROQUEL [Suspect]
     Dosage: THREE TABLETS
     Route: 048
  2. PRASTERONE [Concomitant]
  3. SEROQUEL [Suspect]
     Dosage: TWO
     Route: 048
  4. FIORINAL [Concomitant]
     Indication: HEADACHE
     Dosage: AS REQUIRED
  5. VITAMIN D [Concomitant]
     Dosage: 10000 UNIT
  6. LORTAB [Concomitant]
  7. DEPO-PROVERA [Concomitant]
     Indication: CONTRACEPTION
     Dosage: MONTH
  8. THORAZINE [Concomitant]
  9. SEROQUEL [Suspect]
     Route: 048
     Dates: start: 20111101
  10. XANAX [Concomitant]
  11. CELEXA [Concomitant]
     Indication: ANTIDEPRESSANT THERAPY
  12. SEROQUEL [Suspect]
     Indication: INSOMNIA
     Route: 048
     Dates: start: 20110101, end: 20111101
  13. RISPERDAL [Concomitant]
  14. ATENOLOL [Concomitant]
  15. TYLENOL (CAPLET) [Concomitant]
  16. LAMISIL [Concomitant]

REACTIONS (6)
  - MAJOR DEPRESSION [None]
  - OFF LABEL USE [None]
  - INTENTIONAL DRUG MISUSE [None]
  - INSOMNIA [None]
  - DRUG EFFECT DECREASED [None]
  - MENTAL DISORDER [None]
